FAERS Safety Report 5654030-2 (Version None)
Quarter: 2008Q1

REPORT INFORMATION
  Report Type: 
  Country: None (occurrence: None)
  Receive Date: 20080306
  Receipt Date: 20080106
  Transmission Date: 20080703
  Serious: Yes (Death, Other)
  Sender: FDA-Public Use
  Company Number: US-PFIZER INC-2008002020

PATIENT
  Sex: Male
  Weight: 145.2 kg

DRUGS (3)
  1. VIAGRA [Suspect]
     Dates: start: 20071216, end: 20071216
  2. CHANTIX [Suspect]
     Indication: SMOKING CESSATION THERAPY
     Dates: start: 20071101, end: 20071216
  3. LIPITOR [Suspect]
     Indication: BLOOD CHOLESTEROL

REACTIONS (3)
  - DEATH [None]
  - MALAISE [None]
  - TENSION [None]
